FAERS Safety Report 11807603 (Version 1)
Quarter: 2015Q4

REPORT INFORMATION
  Report Type: Spontaneous
  Country: US (occurrence: US)
  Receive Date: 20151207
  Receipt Date: 20151207
  Transmission Date: 20160305
  Serious: No
  Sender: FDA-Public Use
  Company Number: US-APOTEX-2015AP013362

PATIENT
  Age: 34 Year
  Sex: Male

DRUGS (4)
  1. SERTRALINE HYDROCHLORIDE. [Suspect]
     Active Substance: SERTRALINE HYDROCHLORIDE
     Indication: MAJOR DEPRESSION
     Dosage: 50 MG, DAILY
     Route: 065
  2. SERTRALINE HYDROCHLORIDE. [Suspect]
     Active Substance: SERTRALINE HYDROCHLORIDE
     Dosage: 25 MG, DAILY
  3. CITALOPRAM [Suspect]
     Active Substance: CITALOPRAM HYDROBROMIDE
     Indication: MAJOR DEPRESSION
     Dosage: 20 MG, DAILY
     Route: 065
  4. CITALOPRAM [Suspect]
     Active Substance: CITALOPRAM HYDROBROMIDE
     Indication: POST-TRAUMATIC STRESS DISORDER
     Dosage: 10 MG, DAILY
     Route: 065

REACTIONS (4)
  - Diplopia [Recovered/Resolved]
  - Vision blurred [Unknown]
  - Drug ineffective [Unknown]
  - Photophobia [Recovered/Resolved]
